FAERS Safety Report 5679635-4 (Version None)
Quarter: 2008Q1

REPORT INFORMATION
  Report Type: 
  Country: None (occurrence: None)
  Receive Date: 20080321
  Receipt Date: 20080313
  Transmission Date: 20080703
  Serious: Yes (Other)
  Sender: FDA-Public Use
  Company Number: 2007-04108

PATIENT
  Age: 47 Year
  Sex: Male
  Weight: 60 kg

DRUGS (17)
  1. VELCADE [Suspect]
     Indication: MULTIPLE MYELOMA
     Dosage: 2.1 MG, INTRAVENOUS; 2.00 MG, INTRAVENOUS
     Route: 042
     Dates: start: 20070615, end: 20070625
  2. VELCADE [Suspect]
     Indication: MULTIPLE MYELOMA
     Dosage: 2.1 MG, INTRAVENOUS; 2.00 MG, INTRAVENOUS
     Route: 042
     Dates: start: 20070803, end: 20070806
  3. DEXAMETHASONE TAB [Suspect]
     Indication: MULTIPLE MYELOMA
     Dosage: 12.00 MG, ORAL
     Route: 048
     Dates: start: 20070615, end: 20070804
  4. OXYCONTIN [Suspect]
     Dosage: 240.00 MG, ORAL; 80.00 MG, ORAL; 60.00 MG, ORAL; 40.00 MG; ORAL
     Route: 048
     Dates: start: 20070613, end: 20070619
  5. OXYCONTIN [Suspect]
     Dosage: 240.00 MG, ORAL; 80.00 MG, ORAL; 60.00 MG, ORAL; 40.00 MG; ORAL
     Route: 048
     Dates: start: 20070620, end: 20070626
  6. OXYCONTIN [Suspect]
     Dosage: 240.00 MG, ORAL; 80.00 MG, ORAL; 60.00 MG, ORAL; 40.00 MG; ORAL
     Route: 048
     Dates: start: 20070627, end: 20070629
  7. OXYCONTIN [Suspect]
     Dosage: 240.00 MG, ORAL; 80.00 MG, ORAL; 60.00 MG, ORAL; 40.00 MG; ORAL
     Route: 048
     Dates: start: 20070630
  8. LAMIVUDINE [Concomitant]
  9. ZOVIRAX [Concomitant]
  10. LOXONIN (LOXOPROFEN SODIUM) [Concomitant]
  11. MUCOSTA (REBAMIPIDE) [Concomitant]
  12. POLYCARBOPHIL CALCIUM (OLYCARBOPHIL CALCIUM) [Concomitant]
  13. LAC B (LACTOBACILLUS BIFIDUS, LYOPHILIZED) [Concomitant]
  14. HALCION [Concomitant]
  15. MAXIPIME [Concomitant]
  16. PROSTARMON F (DINOPROST) [Concomitant]
  17. VANCOMYCIN [Concomitant]

REACTIONS (18)
  - ABDOMINAL DISTENSION [None]
  - BACTERAEMIA [None]
  - BLOOD PRESSURE DECREASED [None]
  - DEPRESSED LEVEL OF CONSCIOUSNESS [None]
  - DIARRHOEA [None]
  - ERYTHEMA [None]
  - GASTROENTERITIS SALMONELLA [None]
  - HERPES ZOSTER [None]
  - HYPOAESTHESIA [None]
  - INFECTION IN AN IMMUNOCOMPROMISED HOST [None]
  - LUNG INFILTRATION [None]
  - LYMPHOCYTE COUNT DECREASED [None]
  - PATHOGEN RESISTANCE [None]
  - PNEUMONIA [None]
  - PYREXIA [None]
  - RENAL FAILURE ACUTE [None]
  - SKIN EXFOLIATION [None]
  - STAPHYLOCOCCAL BACTERAEMIA [None]
